FAERS Safety Report 4825634-1 (Version None)
Quarter: 2005Q4

REPORT INFORMATION
  Report Type: 
  Country: None (occurrence: None)
  Receive Date: 20051111
  Receipt Date: 20050222
  Transmission Date: 20060501
  Serious: No
  Sender: FDA-Public Use
  Company Number: US-GLAXOSMITHKLINE-A0546752A

PATIENT
  Age: 72 Year
  Sex: Female

DRUGS (2)
  1. MELPHALAN [Suspect]
     Dosage: 70MGM2 CYCLIC
     Route: 042
     Dates: start: 20050213, end: 20050214
  2. FLUDARABINE [Concomitant]

REACTIONS (1)
  - SKIN DISCOLOURATION [None]
